FAERS Safety Report 26168443 (Version 2)
Quarter: 2025Q4

REPORT INFORMATION
  Report Type: Spontaneous
  Country: JP (occurrence: JP)
  Receive Date: 20251217
  Receipt Date: 20251222
  Transmission Date: 20260118
  Serious: Yes (Other)
  Sender: CSL BEHRING
  Company Number: JP-BEH-2025229574

PATIENT
  Age: 6 Month
  Sex: Male

DRUGS (3)
  1. HUMAN IMMUNOGLOBULIN G [Interacting]
     Active Substance: HUMAN IMMUNOGLOBULIN G
     Indication: Kawasaki^s disease
     Dosage: 2000 MG/KG
     Route: 042
  2. NIRSEVIMAB [Interacting]
     Active Substance: NIRSEVIMAB
     Indication: Respiratory syncytial virus bronchiolitis
     Route: 065
  3. CYCLOSPORINE [Suspect]
     Active Substance: CYCLOSPORINE
     Route: 065

REACTIONS (4)
  - Bronchiolitis [Unknown]
  - Respiratory syncytial virus test positive [Unknown]
  - Drug interaction [Unknown]
  - Off label use [Unknown]
